FAERS Safety Report 24411562 (Version 1)
Quarter: 2024Q4

REPORT INFORMATION
  Report Type: Spontaneous
  Country: US (occurrence: US)
  Receive Date: 20241008
  Receipt Date: 20241008
  Transmission Date: 20250115
  Serious: No
  Sender: CELLTRION
  Company Number: US-CELLTRION INC.-2024US005367

PATIENT

DRUGS (6)
  1. INFLECTRA [Suspect]
     Active Substance: INFLIXIMAB-DYYB
     Indication: Colitis ulcerative
     Dosage: 100MG PER VIAL, 1 SINGLE DOSE
     Route: 065
     Dates: start: 20240116
  2. REMICADE [Suspect]
     Active Substance: INFLIXIMAB
     Indication: Colitis ulcerative
     Dosage: 2 WEEKS PRIOR TO SECOND DOSE
  3. REMICADE [Suspect]
     Active Substance: INFLIXIMAB
     Dosage: 4 WEEKS PRIOR TO FIRST DOSE
  4. REMICADE [Suspect]
     Active Substance: INFLIXIMAB
     Dosage: 3 DOSES
     Dates: start: 20231219
  5. BUDESONIDE [Concomitant]
     Active Substance: BUDESONIDE
  6. IRON [Concomitant]
     Active Substance: IRON

REACTIONS (17)
  - Walking aid user [Unknown]
  - Loss of personal independence in daily activities [Unknown]
  - Dysphonia [Not Recovered/Not Resolved]
  - Mental fatigue [Unknown]
  - Hypotonia [Unknown]
  - Condition aggravated [Not Recovered/Not Resolved]
  - Supraventricular tachycardia [Recovering/Resolving]
  - Fatigue [Unknown]
  - Laryngitis [Not Recovered/Not Resolved]
  - Epistaxis [Not Recovered/Not Resolved]
  - Night sweats [Not Recovered/Not Resolved]
  - Peripheral swelling [Not Recovered/Not Resolved]
  - Insomnia [Unknown]
  - Weight decreased [Unknown]
  - Anaemia [Unknown]
  - Asthenia [Unknown]
  - Cardiac disorder [Not Recovered/Not Resolved]

NARRATIVE: CASE EVENT DATE: 20231201
